FAERS Safety Report 10032430 (Version 1)
Quarter: 2014Q1

REPORT INFORMATION
  Report Type: Spontaneous
  Country: FR (occurrence: None)
  Receive Date: 20140320
  Receipt Date: 20140320
  Transmission Date: 20141002
  Serious: Yes (Other)
  Sender: FDA-Public Use
  Company Number: AG-2014-000488

PATIENT
  Age: 75 Year
  Sex: Female

DRUGS (1)
  1. CHLORAMBUCIL [Suspect]
     Indication: NODAL MARGINAL ZONE B-CELL LYMPHOMA
     Route: 048
     Dates: start: 19990315, end: 20111115

REACTIONS (1)
  - Diffuse large B-cell lymphoma [None]
